FAERS Safety Report 6979594-8 (Version None)
Quarter: 2010Q3

REPORT INFORMATION
  Report Type: 
  Country: None (occurrence: None)
  Receive Date: 20100910
  Receipt Date: 20100910
  Transmission Date: 20110219
  Serious: Yes (Hospitalization)
  Sender: FDA-Public Use
  Company Number: None

PATIENT
  Sex: Male

DRUGS (3)
  1. NON COMMERCIAL CISPLATIN [Suspect]
     Indication: FEBRILE NEUTROPENIA
  2. NON COMMERCIAL CISPLATIN [Suspect]
     Indication: PAIN
  3. VP-16 [Suspect]

REACTIONS (4)
  - BACK PAIN [None]
  - CHILLS [None]
  - MYCOBACTERIUM TEST POSITIVE [None]
  - PYREXIA [None]
